FAERS Safety Report 6828264-5 (Version None)
Quarter: 2010Q3

REPORT INFORMATION
  Report Type: 
  Country: None (occurrence: None)
  Receive Date: 20100709
  Receipt Date: 20070202
  Transmission Date: 20110219
  Serious: No
  Sender: FDA-Public Use
  Company Number: US-PFIZER INC-2007009875

PATIENT
  Sex: Female
  Weight: 74.84 kg

DRUGS (7)
  1. CHANTIX [Suspect]
     Indication: SMOKING CESSATION THERAPY
     Dates: start: 20070201
  2. CYMBALTA [Concomitant]
  3. LUNESTA [Concomitant]
  4. CLONIDINE [Concomitant]
  5. TEGRETOL [Concomitant]
  6. XANAX [Concomitant]
  7. MOTRIN [Concomitant]

REACTIONS (4)
  - AGITATION [None]
  - ENERGY INCREASED [None]
  - LOGORRHOEA [None]
  - MANIA [None]
